FAERS Safety Report 7767627 (Version 4)
Quarter: 2012Q4

REPORT INFORMATION
  Report Type: 
  Country: US (occurrence: US)
  Receive Date: 20110120
  Receipt Date: 20120829
  Transmission Date: 20130627
  Serious: Yes (Hospitalization, Other)
  Sender: FDA-Public Use
  Company Number: US-BAYER-2011-006290

PATIENT
  Age: 19 Year
  Sex: Female
  Weight: 71.66 kg

DRUGS (4)
  1. YAZ [Suspect]
     Dosage: UNK
     Dates: start: 200902, end: 20090628
  2. YAZ [Suspect]
  3. TAZORAC [Concomitant]
     Dosage: 0.1%
     Route: 061
     Dates: start: 20090408
  4. CLINDAMYCIN [Concomitant]
     Dosage: 150 mg, UNK
     Route: 048
     Dates: start: 20090415

REACTIONS (11)
  - Pulmonary embolism [None]
  - Irritable bowel syndrome [None]
  - Pain [None]
  - Dyspnoea [None]
  - Emotional distress [None]
  - Menorrhagia [None]
  - General physical health deterioration [None]
  - Exercise tolerance decreased [None]
  - Weight increased [None]
  - Medical diet [None]
  - Infection [None]
